FAERS Safety Report 4933188-4 (Version None)
Quarter: 2006Q1

REPORT INFORMATION
  Report Type: 
  Country: None (occurrence: None)
  Receive Date: 20060306
  Receipt Date: 20050209
  Transmission Date: 20060701
  Serious: Yes (Hospitalization, Disabling)
  Sender: FDA-Public Use
  Company Number: US-MERCK-0502USA01339

PATIENT
  Age: 58 Year
  Sex: Male
  Weight: 73 kg

DRUGS (6)
  1. VIOXX [Suspect]
     Indication: ARTHRITIS
     Route: 048
     Dates: start: 20010703
  2. ZOCOR [Concomitant]
     Indication: CARDIAC DISORDER
     Route: 048
     Dates: start: 20030325
  3. ASPIRIN [Concomitant]
     Indication: PROPHYLAXIS
     Route: 065
     Dates: start: 20030325
  4. ZYRTEC [Concomitant]
     Route: 065
  5. VIAGRA [Concomitant]
     Route: 065
  6. ZANTAC [Concomitant]
     Route: 065

REACTIONS (14)
  - ANGINA UNSTABLE [None]
  - ARRHYTHMIA [None]
  - ARTERIOSCLEROSIS CORONARY ARTERY [None]
  - ATRIAL TACHYCARDIA [None]
  - CHEST PAIN [None]
  - CORONARY ARTERY DISEASE [None]
  - DIZZINESS [None]
  - DRUG INEFFECTIVE [None]
  - HYPERLIPIDAEMIA [None]
  - INSOMNIA [None]
  - INTERVERTEBRAL DISC PROTRUSION [None]
  - MYOCARDIAL INFARCTION [None]
  - PALPITATIONS [None]
  - SCIATICA [None]
